FAERS Safety Report 8297448-4 (Version None)
Quarter: 2012Q2

REPORT INFORMATION
  Report Type: 
  Country: None (occurrence: None)
  Receive Date: 20120419
  Receipt Date: 20120409
  Transmission Date: 20120825
  Serious: Yes (Other)
  Sender: FDA-Public Use
  Company Number: US-MYLANLABS-2012S1006162

PATIENT
  Age: 38 Year
  Sex: Female
  Weight: 122.47 kg

DRUGS (8)
  1. PAXIL [Concomitant]
  2. BUSPIRONE HCL [Concomitant]
  3. ETHINYL ESTRADIOL [Concomitant]
  4. PRILOSEC [Concomitant]
  5. CRESTOR [Concomitant]
  6. PORTIA-21 [Concomitant]
  7. MULTI-VITAMIN [Concomitant]
  8. AMNESTEEM [Suspect]
     Indication: ACNE CYSTIC
     Route: 048
     Dates: start: 20120110, end: 20120320

REACTIONS (1)
  - SUICIDAL IDEATION [None]
